FAERS Safety Report 6090000-0 (Version None)
Quarter: 2009Q1

REPORT INFORMATION
  Report Type: 
  Country: None (occurrence: None)
  Receive Date: 20090224
  Receipt Date: 20081201
  Transmission Date: 20090719
  Serious: No
  Sender: FDA-Public Use
  Company Number: US-ABBOTT-08P-163-0490318-00

PATIENT
  Sex: Male
  Weight: 145.28 kg

DRUGS (5)
  1. SIMCOR [Suspect]
     Indication: BLOOD CHOLESTEROL INCREASED
     Dosage: 500/20 MG DAILY
     Dates: start: 20081116, end: 20081130
  2. DIOVAN [Concomitant]
     Indication: HYPERTENSION
  3. CARVEDILOL [Concomitant]
     Indication: PALPITATIONS
  4. ASPIRIN [Concomitant]
     Indication: CARDIOMYOPATHY
  5. ASPIRIN [Concomitant]
     Indication: ARRHYTHMIA

REACTIONS (3)
  - ERYTHEMA [None]
  - OEDEMA PERIPHERAL [None]
  - SKIN BURNING SENSATION [None]
